APPROVED DRUG PRODUCT: DICYCLOMINE HYDROCHLORIDE
Active Ingredient: DICYCLOMINE HYDROCHLORIDE
Strength: 10MG
Dosage Form/Route: CAPSULE;ORAL
Application: A218018 | Product #001 | TE Code: AB
Applicant: ANNORA PHARMA PRIVATE LTD
Approved: Jul 1, 2024 | RLD: No | RS: No | Type: RX